FAERS Safety Report 19552789 (Version 2)
Quarter: 2021Q4

REPORT INFORMATION
  Report Type: Spontaneous
  Country: US (occurrence: US)
  Receive Date: 20210714
  Receipt Date: 20211106
  Transmission Date: 20220303
  Serious: No
  Sender: FDA-Public Use
  Company Number: US-SA-SAC20210709000939

PATIENT
  Age: 66 Year
  Sex: Female

DRUGS (12)
  1. DUPIXENT [Suspect]
     Active Substance: DUPILUMAB
     Indication: Nasal polyps
     Dosage: 300 MG, QOW
     Route: 058
     Dates: start: 20210121
  2. ADVAIR HFA [Concomitant]
     Active Substance: FLUTICASONE PROPIONATE\SALMETEROL XINAFOATE
  3. ZYRTEC [Concomitant]
     Active Substance: CETIRIZINE HYDROCHLORIDE
  4. PREVACID [Concomitant]
     Active Substance: LANSOPRAZOLE
  5. VIVAGLOBIN [Concomitant]
     Active Substance: HUMAN IMMUNOGLOBULIN G
  6. VIVAGLOBIN [Concomitant]
     Active Substance: HUMAN IMMUNOGLOBULIN G
  7. SINGULAIR [Concomitant]
     Active Substance: MONTELUKAST SODIUM
  8. PROAIR HFA [Concomitant]
     Active Substance: ALBUTEROL SULFATE
  9. QVAR [Concomitant]
     Active Substance: BECLOMETHASONE DIPROPIONATE
  10. CALCIUM;MAGNESIUM [Concomitant]
     Dosage: UNK
  11. HIZENTRA [Concomitant]
     Active Substance: HUMAN IMMUNOGLOBULIN G
  12. CAYSTON [Concomitant]
     Active Substance: AZTREONAM

REACTIONS (5)
  - Insomnia [Not Recovered/Not Resolved]
  - Myalgia [Not Recovered/Not Resolved]
  - Loss of personal independence in daily activities [Not Recovered/Not Resolved]
  - Asthma [Not Recovered/Not Resolved]
  - Pain [Not Recovered/Not Resolved]
